FAERS Safety Report 4286128-8 (Version None)
Quarter: 2004Q1

REPORT INFORMATION
  Report Type: 
  Country: None (occurrence: None)
  Receive Date: 20040113
  Receipt Date: 20031106
  Transmission Date: 20041129
  Serious: Yes (Hospitalization)
  Sender: FDA-Public Use
  Company Number: A0320032727

PATIENT
  Age: 62 Year
  Sex: Male

DRUGS (1)
  1. UROXATRAL [Suspect]
     Dosage: 10 MG QD - ORAL
     Route: 048
     Dates: start: 20031105

REACTIONS (1)
  - SYNCOPE [None]
